FAERS Safety Report 23381892 (Version 1)
Quarter: 2024Q1

REPORT INFORMATION
  Report Type: Spontaneous
  Country: US (occurrence: None)
  Receive Date: 20240108
  Receipt Date: 20240108
  Transmission Date: 20240409
  Serious: Yes (Other)
  Sender: FDA-Public Use
  Company Number: None

PATIENT
  Age: 61 Year
  Sex: Male
  Weight: 69.3 kg

DRUGS (5)
  1. DAYQUIL COLD AND FLU [Suspect]
     Active Substance: ACETAMINOPHEN\DEXTROMETHORPHAN HYDROBROMIDE\PHENYLEPHRINE HYDROCHLORIDE
     Indication: Cough
  2. DAYQUIL COLD AND FLU [Suspect]
     Active Substance: ACETAMINOPHEN\DEXTROMETHORPHAN HYDROBROMIDE\PHENYLEPHRINE HYDROCHLORIDE
     Indication: Nasopharyngitis
  3. DayQuil Cold [Concomitant]
  4. FLU [Concomitant]
  5. TOPCARE [Concomitant]
     Active Substance: ZINC GLUCONATE

REACTIONS (3)
  - Tinnitus [None]
  - Stress [None]
  - Hypoacusis [None]

NARRATIVE: CASE EVENT DATE: 20220818
